FAERS Safety Report 22868819 (Version 4)
Quarter: 2023Q4

REPORT INFORMATION
  Report Type: Spontaneous
  Country: US (occurrence: US)
  Receive Date: 20230825
  Receipt Date: 20231219
  Transmission Date: 20240109
  Serious: No
  Sender: FDA-Public Use
  Company Number: US-PFIZER INC-202200239477

PATIENT
  Age: 77 Year
  Sex: Female

DRUGS (1)
  1. IBRANCE [Suspect]
     Active Substance: PALBOCICLIB
     Indication: Breast cancer female
     Dosage: 125 MG, CYCLIC (FOR 21 DAYS, AND THEN 1 WEEK OFF, EVERY 28 DAYS)
     Route: 048

REACTIONS (2)
  - COVID-19 [Unknown]
  - Fatigue [Unknown]
